FAERS Safety Report 5158623-0 (Version None)
Quarter: 2006Q4

REPORT INFORMATION
  Report Type: 
  Country: None (occurrence: None)
  Receive Date: 20061128
  Receipt Date: 20061116
  Transmission Date: 20070319
  Serious: Yes (Death, Hospitalization)
  Sender: FDA-Public Use
  Company Number: US-ELI_LILLY_AND_COMPANY-US200611003702

PATIENT
  Age: 74 Year
  Sex: Male

DRUGS (1)
  1. ALIMTA [Suspect]
     Dosage: 925 MG, UNK
     Route: 042
     Dates: start: 20061113

REACTIONS (3)
  - CONFUSIONAL STATE [None]
  - DEATH [None]
  - RESPIRATORY FAILURE [None]
